FAERS Safety Report 9525138 (Version 1)
Quarter: 2013Q1

REPORT INFORMATION
  Report Type: Spontaneous
  Country: US (occurrence: None)
  Receive Date: 20130313
  Receipt Date: 20130313
  Transmission Date: 20140127
  Serious: No
  Sender: FDA-Public Use
  Company Number: 1000031180

PATIENT
  Age: 63 Year
  Sex: Female

DRUGS (11)
  1. SAVELLA (MILNACIPRAN HYDROCHLORIDE) (12.5 MILLIGRAM, TABLETS) [Suspect]
     Indication: FIBROMYALGIA
  2. SAVELLA (MILNACIPRAN HYDROCHLORIDE) (25 MILLIGRAM, TABLETS) [Suspect]
     Indication: FIBROMYALGIA
     Route: 048
     Dates: start: 201205, end: 201205
  3. MEDROXYPROGESTERONE (MEDROXYPROGESTERONE) (MEDROXYPROGESTERONE) [Concomitant]
  4. GABAPENTIN (GABAPENTIN) (GABAPENTIN) [Concomitant]
  5. OMEPRAZOLE (OMEPRAZOLE) (OMEPRAZOLE) [Concomitant]
  6. MELOXICAM (MELOXICAM) (MELOXICAM) [Concomitant]
  7. FOSAMAX (ALENDRONATE SODIUM) (ALENDRONATE SODIUM) [Concomitant]
  8. LASIX (FUROSEMIDE) (FUROSEMIDE) [Concomitant]
  9. VIVELLE-DOT (ESTRADIOL) (ESTRADIOL) [Concomitant]
  10. LEVOTHYROXINE (LEVOTHYROXINE SODIUM) (LEVOTHYROXINE SODIUM) [Concomitant]
  11. CYTOMEL (LIOTHYRONINE SODIUM) (LIOTHYRONINE SODIUM) [Concomitant]

REACTIONS (5)
  - Feeling jittery [None]
  - Hyperhidrosis [None]
  - Hot flush [None]
  - Headache [None]
  - Nausea [None]
